FAERS Safety Report 9402000 (Version 1)
Quarter: 2013Q3

REPORT INFORMATION
  Report Type: Spontaneous
  Country: US (occurrence: US)
  Receive Date: 20130716
  Receipt Date: 20130716
  Transmission Date: 20140515
  Serious: No
  Sender: FDA-Public Use
  Company Number: US-PFIZER INC-2013206553

PATIENT
  Sex: Female

DRUGS (3)
  1. EFFEXOR XR [Suspect]
     Dosage: 37.5 MG, 1X/DAY
  2. EFFEXOR XR [Suspect]
     Dosage: 75 MG, 1X/DAY
     Dates: start: 201307
  3. EFFEXOR XR [Suspect]
     Dosage: UNK, 1X/DAY

REACTIONS (4)
  - Diarrhoea [Unknown]
  - Cough [Unknown]
  - Pyrexia [Unknown]
  - Feeling hot [Unknown]
